FAERS Safety Report 4382561-4 (Version None)
Quarter: 2004Q2

REPORT INFORMATION
  Report Type: 
  Country: None (occurrence: None)
  Receive Date: 20040617
  Receipt Date: 20040603
  Transmission Date: 20050107
  Serious: Yes (Death, Hospitalization)
  Sender: FDA-Public Use
  Company Number: F01200401298

PATIENT
  Age: 75 Year
  Sex: Male

DRUGS (8)
  1. OXALIPLATIN - SOLUTION - 130 MG/M2 [Suspect]
     Indication: COLON CANCER
     Dosage: 231 MG Q3QW,  INTRAVENOUS NOS
     Route: 042
     Dates: start: 20040506, end: 20040506
  2. CAPECITABINE - TABLET - 1800 MG [Suspect]
     Dosage: ORAL
     Route: 048
     Dates: start: 20040506, end: 20040520
  3. FERROUS GLUCONATE [Concomitant]
  4. ONDANSETRON (ONDANSETRON HYDROCHLORIDE) [Concomitant]
  5. PROCHLORPERAZINE [Concomitant]
  6. IMODIUM [Concomitant]
  7. SULCRATE  (SUCRALFATE) [Concomitant]
  8. INSULIN [Concomitant]

REACTIONS (13)
  - ABDOMINAL PAIN LOWER [None]
  - ACIDOSIS [None]
  - ASTHENIA [None]
  - CARDIAC ARREST [None]
  - ENTERITIS [None]
  - HYPERGLYCAEMIA [None]
  - HYPOTENSION [None]
  - INTESTINAL OBSTRUCTION [None]
  - INTESTINAL PERFORATION [None]
  - MALAISE [None]
  - SEPSIS [None]
  - WEIGHT DECREASED [None]
  - X-RAY ABNORMAL [None]
